FAERS Safety Report 7340911-0 (Version None)
Quarter: 2011Q1

REPORT INFORMATION
  Report Type: 
  Country: None (occurrence: None)
  Receive Date: 20110309
  Receipt Date: 20110215
  Transmission Date: 20110831
  Serious: No
  Sender: FDA-Public Use
  Company Number: US-ABBOTT-11P-163-0706443-00

PATIENT
  Sex: Female
  Weight: 122.58 kg

DRUGS (2)
  1. HYDROCHLOROTHIAZIDE [Concomitant]
     Indication: SWELLING
  2. LUPRON DEPOT [Suspect]
     Indication: UTERINE LEIOMYOMA
     Dates: start: 20101109

REACTIONS (3)
  - HOT FLUSH [None]
  - HEART RATE INCREASED [None]
  - ARTHRALGIA [None]
